FAERS Safety Report 7878416-0 (Version None)
Quarter: 2011Q4

REPORT INFORMATION
  Report Type: 
  Country: None (occurrence: None)
  Receive Date: 20111101
  Receipt Date: 20111017
  Transmission Date: 20120403
  Serious: Yes (Hospitalization)
  Sender: FDA-Public Use
  Company Number: DE-UCBSA-042587

PATIENT
  Sex: Male
  Weight: 74 kg

DRUGS (16)
  1. EFFIENT [Concomitant]
     Indication: CARDIAC DISORDER
     Dates: start: 20090101
  2. ARICEPT [Concomitant]
     Indication: NERVOUS SYSTEM DISORDER
     Dates: start: 20110101
  3. VIMPAT [Suspect]
     Indication: HEADACHE
     Dosage: SINGLE DOSE:200-200; NO OF SINGLE DOSES: 200/200
     Dates: start: 20110801
  4. VIMPAT [Suspect]
     Indication: CONVULSION
     Dosage: SINGLE DOSE:200-200; NO OF SINGLE DOSES: 200/200
     Dates: start: 20110801
  5. PROMETHAZINE [Concomitant]
     Indication: SLEEP DISORDER
     Dates: start: 20110101
  6. SIMVALIP [Concomitant]
     Indication: CARDIAC DISORDER
     Dates: start: 20070101
  7. BISOPROLOL FUMARATE [Concomitant]
     Indication: CARDIAC DISORDER
     Dates: start: 20090101
  8. PANTOPRAZOLE SODIUM [Concomitant]
     Indication: GASTRIC DISORDER
     Dates: start: 20070101
  9. TAMSUBLOCK [Concomitant]
     Indication: URINARY TRACT DISORDER
     Dates: start: 20100101
  10. CA+D3, EFFERV [Concomitant]
     Indication: BONE DISORDER
     Dates: start: 20070101
  11. VIMPAT [Suspect]
     Dosage: SINGLE DOSE:100-200; NO OF SINGLE DOSES:100/200
     Dates: start: 20110401
  12. RANITIDINE HCL [Concomitant]
     Indication: GASTRIC DISORDER
     Dates: start: 20080101
  13. VIMPAT [Suspect]
     Indication: SLEEP DISORDER
     Dosage: SINGLE DOSE:200-200; NO OF SINGLE DOSES: 200/200
     Dates: start: 20110801
  14. VIMPAT [Suspect]
     Dosage: SINGLE DOSE:100-200; NO OF SINGLE DOSES:100/200
     Dates: start: 20110401
  15. VIMPAT [Suspect]
     Dosage: SINGLE DOSE:100-200; NO OF SINGLE DOSES:100/200
     Dates: start: 20110401
  16. KEPPRA [Suspect]
     Indication: CONVULSION
     Dosage: 500-1500MG
     Dates: start: 20110101

REACTIONS (6)
  - URETHRAL STENOSIS [None]
  - TONSILLAR HAEMORRHAGE [None]
  - SLEEP DISORDER [None]
  - HEADACHE [None]
  - HAEMATOMA [None]
  - DRUG EFFECT DECREASED [None]
